FAERS Safety Report 11697176 (Version 1)
Quarter: 2015Q4

REPORT INFORMATION
  Report Type: Report from Study
  Country: US (occurrence: US)
  Receive Date: 20151104
  Receipt Date: 20151104
  Transmission Date: 20160304
  Serious: No
  Sender: FDA-Public Use
  Company Number: US-AMGEN-USASL2015115095

PATIENT
  Age: 72 Year
  Sex: Female

DRUGS (1)
  1. ENBREL [Suspect]
     Active Substance: ETANERCEPT
     Indication: PSORIASIS
     Dosage: 25 MG, 2 TIMES/WK
     Route: 065
     Dates: start: 20150918

REACTIONS (6)
  - Injection site pain [Unknown]
  - Feeling hot [Unknown]
  - Contusion [Unknown]
  - Skin swelling [Unknown]
  - Erythema [Unknown]
  - Capillary fragility [Unknown]

NARRATIVE: CASE EVENT DATE: 2015
